FAERS Safety Report 4630054-9 (Version None)
Quarter: 2005Q2

REPORT INFORMATION
  Report Type: 
  Country: None (occurrence: None)
  Receive Date: 20050406
  Receipt Date: 20050321
  Transmission Date: 20051028
  Serious: No
  Sender: FDA-Public Use
  Company Number: 10678

PATIENT
  Age: 62 Year
  Sex: Female

DRUGS (5)
  1. DOXORUBICIN HCL [Suspect]
  2. CYCLOPHOSPHAMIDE [Suspect]
  3. METHOTREXATE [Suspect]
  4. FLUOROURACIL [Suspect]
  5. DOCETAXEL [Suspect]

REACTIONS (1)
  - CARDIOMYOPATHY [None]
